FAERS Safety Report 4289136-6 (Version None)
Quarter: 2004Q1

REPORT INFORMATION
  Report Type: 
  Country: None (occurrence: None)
  Receive Date: 20040210
  Receipt Date: 20040130
  Transmission Date: 20041129
  Serious: Yes (Other)
  Sender: FDA-Public Use
  Company Number: PHBS2004NL01540

PATIENT
  Sex: Male

DRUGS (1)
  1. LEPONEX [Suspect]
     Indication: SCHIZOPHRENIA
     Route: 048

REACTIONS (4)
  - DIALYSIS [None]
  - POISONING [None]
  - RENAL IMPAIRMENT [None]
  - RHABDOMYOLYSIS [None]
